FAERS Safety Report 7163232-8 (Version None)
Quarter: 2010Q4

REPORT INFORMATION
  Report Type: 
  Country: None (occurrence: None)
  Receive Date: 20101202
  Receipt Date: 20101108
  Transmission Date: 20110411
  Serious: No
  Sender: FDA-Public Use
  Company Number: 2010-00994

PATIENT
  Sex: Female

DRUGS (1)
  1. ZICAM ORAL PRODUCTS [Suspect]
     Dosage: 3 DAYS
     Dates: start: 20101104, end: 20101106

REACTIONS (1)
  - AGEUSIA [None]
